APPROVED DRUG PRODUCT: NICARDIPINE HYDROCHLORIDE
Active Ingredient: NICARDIPINE HYDROCHLORIDE
Strength: 30MG
Dosage Form/Route: CAPSULE;ORAL
Application: A216357 | Product #002 | TE Code: AB
Applicant: GLENMARK PHARMACEUTICALS LTD
Approved: Dec 16, 2022 | RLD: No | RS: No | Type: RX